FAERS Safety Report 5995432-4 (Version None)
Quarter: 2008Q4

REPORT INFORMATION
  Report Type: 
  Country: None (occurrence: None)
  Receive Date: 20081212
  Receipt Date: 20080925
  Transmission Date: 20090506
  Serious: No
  Sender: FDA-Public Use
  Company Number: US-ABBOTT-08P-163-0478825-00

PATIENT
  Age: 40 Year
  Sex: Female

DRUGS (4)
  1. HUMIRA [Suspect]
     Indication: PSORIASIS
     Dosage: 80MG LOADING DOSE FIRST WEEK
     Route: 050
     Dates: start: 20080101
  2. HUMIRA [Suspect]
  3. HUMIRA [Suspect]
     Dates: end: 20080301
  4. ETANERCEPT [Concomitant]
     Indication: PSORIASIS

REACTIONS (1)
  - CHEST PAIN [None]
